FAERS Safety Report 12966819 (Version 1)
Quarter: 2016Q4

REPORT INFORMATION
  Report Type: Spontaneous
  Country: US (occurrence: US)
  Receive Date: 20161121
  Receipt Date: 20161121
  Transmission Date: 20170207
  Serious: Yes (Other)
  Sender: FDA-Public Use
  Company Number: None

PATIENT
  Age: 10 Year
  Sex: Male
  Weight: 44.1 kg

DRUGS (3)
  1. CHILDREN^S ONE A DAY [Concomitant]
  2. FISH OIL [Concomitant]
     Active Substance: FISH OIL
  3. MIRALAX [Suspect]
     Active Substance: POLYETHYLENE GLYCOL 3350
     Indication: PRODUCT USED FOR UNKNOWN INDICATION
     Route: 048
     Dates: start: 20160901, end: 20161120

REACTIONS (6)
  - Screaming [None]
  - Psychotic behaviour [None]
  - Crying [None]
  - Seizure [None]
  - Abnormal behaviour [None]
  - Feeling drunk [None]

NARRATIVE: CASE EVENT DATE: 20161120
